FAERS Safety Report 7050465-4 (Version None)
Quarter: 2010Q4

REPORT INFORMATION
  Report Type: 
  Country: None (occurrence: None)
  Receive Date: 20101018
  Receipt Date: 20101013
  Transmission Date: 20110411
  Serious: Yes (Death)
  Sender: FDA-Public Use
  Company Number: JP-ROCHE-726383

PATIENT
  Sex: Female

DRUGS (13)
  1. TOCILIZUMAB [Suspect]
     Indication: CASTLEMAN'S DISEASE
     Route: 041
     Dates: start: 20100615, end: 20100629
  2. TOCILIZUMAB [Suspect]
     Route: 041
     Dates: start: 20100713, end: 20100802
  3. SOLU-MEDROL [Concomitant]
     Indication: CASTLEMAN'S DISEASE
     Route: 042
     Dates: start: 20100603, end: 20100629
  4. PREDONINE [Concomitant]
     Route: 048
     Dates: end: 20100602
  5. PREDONINE [Concomitant]
     Dosage: DOSE FORM: PERORAL AGENT
     Route: 048
     Dates: start: 20100630, end: 20100804
  6. HERBESSER [Concomitant]
     Route: 048
     Dates: end: 20100804
  7. FRANDOL [Concomitant]
     Route: 061
     Dates: end: 20100804
  8. BUTAMIDE [Concomitant]
     Route: 048
     Dates: end: 20100804
  9. METFORMIN HCL [Concomitant]
     Route: 048
     Dates: end: 20100804
  10. ITRIZOLE [Concomitant]
     Dosage: DOSE FORM: PERORAL LIQUID PREPARATION
     Route: 048
     Dates: end: 20100804
  11. BAKTAR [Concomitant]
     Route: 048
     Dates: end: 20100804
  12. LASIX [Concomitant]
     Route: 048
     Dates: end: 20100804
  13. SIGMART [Concomitant]
     Route: 048
     Dates: end: 20100804

REACTIONS (1)
  - CASTLEMAN'S DISEASE [None]
